FAERS Safety Report 5129805-9 (Version None)
Quarter: 2006Q4

REPORT INFORMATION
  Report Type: 
  Country: None (occurrence: None)
  Receive Date: 20061012
  Receipt Date: 20060929
  Transmission Date: 20070319
  Serious: Yes (Hospitalization)
  Sender: FDA-Public Use
  Company Number: 229493

PATIENT
  Sex: Male

DRUGS (6)
  1. MABTHERA (RITUXIMAB)CONC FOR SOLUTION FOR INFUSION [Suspect]
     Indication: RHEUMATOID ARTHRITIS
     Dosage: 500 MG INTRAVENOUS
     Route: 042
     Dates: start: 20060601, end: 20060601
  2. GLUCOCORTICOID [Concomitant]
  3. METHOTREXATE SODIUM [Concomitant]
  4. ACETAMINOPHEN [Concomitant]
  5. CETIRIZINE HCL [Concomitant]
  6. CORTISONE (CORTISONE ACETATE) [Concomitant]

REACTIONS (4)
  - ARTHRITIS [None]
  - C-REACTIVE PROTEIN INCREASED [None]
  - CONDITION AGGRAVATED [None]
  - PYREXIA [None]
